FAERS Safety Report 4911473-X (Version None)
Quarter: 2006Q1

REPORT INFORMATION
  Report Type: 
  Country: None (occurrence: None)
  Receive Date: 20060213
  Receipt Date: 20060130
  Transmission Date: 20060701
  Serious: Yes (Death, Life-Threatening, Hospitalization)
  Sender: FDA-Public Use
  Company Number: 220122

PATIENT
  Age: 71 Year
  Sex: Female

DRUGS (13)
  1. RITUXAN (RITUXIMAB) CONC FOR SOLUTION FOR INFUSION [Suspect]
     Indication: MANTLE CELL LYMPHOMA
     Dosage: 375 MG/M2, Q28D,INTRAVENOUS
     Route: 042
     Dates: start: 20040927, end: 20050317
  2. FLUDARABINE PHOSPHATE [Suspect]
     Indication: MANTLE CELL LYMPHOMA
     Dosage: 25 MG/M2, Q28D, INTRAVENOUS
     Route: 042
     Dates: start: 20040927, end: 20050311
  3. NORVASC [Concomitant]
  4. ATENOLOL [Concomitant]
  5. DIOVAN [Concomitant]
  6. HCTZ (HYDROCHLOROTHIAZIDE) [Concomitant]
  7. MULTI-VITAMINS [Concomitant]
  8. GLUCOSAMINE (GLUCOSAMINE) [Concomitant]
  9. FOLIC ACID [Concomitant]
  10. PREDNISONE [Concomitant]
  11. ACYCLOVIR [Concomitant]
  12. BACTRIM [Concomitant]
  13. TPN (HYPERALIMENTATION) [Concomitant]

REACTIONS (35)
  - APLASTIC ANAEMIA [None]
  - ATRIAL FIBRILLATION [None]
  - BLOOD ALKALINE PHOSPHATASE INCREASED [None]
  - CATHETER RELATED COMPLICATION [None]
  - COLD AGGLUTININS POSITIVE [None]
  - CSF VIRUS IDENTIFIED [None]
  - ENTEROCOCCAL BACTERAEMIA [None]
  - HAEMATOCRIT DECREASED [None]
  - HAEMORRHAGE [None]
  - HYPERSENSITIVITY [None]
  - HYPERTHERMIA [None]
  - HYPOCHROMASIA [None]
  - HYPOTENSION [None]
  - HYPOXIA [None]
  - INFECTION [None]
  - LOSS OF CONSCIOUSNESS [None]
  - LUNG NEOPLASM [None]
  - LYMPHADENOPATHY [None]
  - MENTAL STATUS CHANGES [None]
  - METABOLIC DISORDER [None]
  - NAUSEA [None]
  - OESOPHAGEAL CANDIDIASIS [None]
  - PANCYTOPENIA [None]
  - PNEUMONITIS [None]
  - POIKILOCYTOSIS [None]
  - PULMONARY EMBOLISM [None]
  - RED BLOOD CELL ANISOCYTES PRESENT [None]
  - RESPIRATORY ALKALOSIS [None]
  - SEPSIS [None]
  - STAPHYLOCOCCAL INFECTION [None]
  - STREPTOCOCCAL INFECTION [None]
  - THERAPY NON-RESPONDER [None]
  - UROSEPSIS [None]
  - VIRAL INFECTION [None]
  - VOMITING [None]
